FAERS Safety Report 22168450 (Version 3)
Quarter: 2023Q2

REPORT INFORMATION
  Report Type: Report from Study
  Country: US (occurrence: US)
  Receive Date: 20230403
  Receipt Date: 20230410
  Transmission Date: 20230722
  Serious: Yes (Other)
  Sender: FDA-Public Use
  Company Number: US-ABBVIE-4713848

PATIENT
  Age: 79 Year
  Sex: Male

DRUGS (4)
  1. VENCLEXTA [Suspect]
     Active Substance: VENETOCLAX
     Indication: Chronic lymphocytic leukaemia
     Dosage: START DATE TEXT: UNKNOWN
     Route: 048
     Dates: end: 202206
  2. VENCLEXTA [Suspect]
     Active Substance: VENETOCLAX
     Indication: Chronic lymphocytic leukaemia
     Dosage: STOP DATE TEXT: UNKNOWN
     Route: 048
     Dates: start: 2019, end: 2022
  3. VENCLEXTA [Suspect]
     Active Substance: VENETOCLAX
     Indication: Chronic lymphocytic leukaemia
     Dosage: START DATE TEXT: UNKNOWN
     Route: 048
  4. VENCLEXTA [Suspect]
     Active Substance: VENETOCLAX
     Indication: Chronic lymphocytic leukaemia
     Dosage: START DATE TEXT: UNKNOWN
     Route: 048

REACTIONS (2)
  - Leukaemia [Not Recovered/Not Resolved]
  - Hypoacusis [Unknown]

NARRATIVE: CASE EVENT DATE: 20230330
